FAERS Safety Report 8547325-6 (Version None)
Quarter: 2012Q3

REPORT INFORMATION
  Report Type: 
  Country: None (occurrence: None)
  Receive Date: 20120727
  Receipt Date: 20120319
  Transmission Date: 20120928
  Serious: No
  Sender: FDA-Public Use
  Company Number: US-ASTRAZENECA-2012SE18851

PATIENT
  Age: 39 Year
  Sex: Male

DRUGS (5)
  1. SEROQUEL XR [Suspect]
     Indication: OBSESSIVE-COMPULSIVE DISORDER
     Route: 048
  2. SEROQUEL XR [Suspect]
     Indication: BIPOLAR DISORDER
     Route: 048
  3. SEROQUEL XR [Suspect]
     Route: 048
  4. SEROQUEL XR [Suspect]
     Route: 048
  5. XANAX [Concomitant]
     Route: 048

REACTIONS (4)
  - MUSCULOSKELETAL STIFFNESS [None]
  - TREMOR [None]
  - EXTRAPYRAMIDAL DISORDER [None]
  - OFF LABEL USE [None]
